FAERS Safety Report 7385083-1 (Version None)
Quarter: 2011Q1

REPORT INFORMATION
  Report Type: 
  Country: None (occurrence: None)
  Receive Date: 20110330
  Receipt Date: 20110328
  Transmission Date: 20110831
  Serious: Yes (Hospitalization)
  Sender: FDA-Public Use
  Company Number: US-GILEAD-2011-0037813

PATIENT
  Sex: Female
  Weight: 175.7 kg

DRUGS (16)
  1. COMBIVENT [Concomitant]
  2. LASIX [Concomitant]
  3. MAXZIDE [Concomitant]
  4. NEURONTIN [Concomitant]
  5. PAXIL [Concomitant]
  6. LETAIRIS [Suspect]
     Indication: PULMONARY HYPERTENSION
     Route: 048
     Dates: start: 20091028
  7. ZOCOR [Concomitant]
  8. TOPROL-XL [Concomitant]
  9. GLIPIZIDE [Concomitant]
  10. BYETTA [Concomitant]
  11. K-DUR [Concomitant]
  12. METFORMIN [Concomitant]
  13. OXYGEN [Concomitant]
  14. VASOTEC [Concomitant]
  15. VERAPAMIL EXTENDED-RELEASE [Concomitant]
  16. COUMADIN [Concomitant]

REACTIONS (1)
  - FEMUR FRACTURE [None]
